FAERS Safety Report 23304414 (Version 1)
Quarter: 2023Q4

REPORT INFORMATION
  Report Type: Spontaneous
  Country: US (occurrence: None)
  Receive Date: 20231218
  Receipt Date: 20231218
  Transmission Date: 20240110
  Serious: No
  Sender: FDA-Public Use
  Company Number: 2023A276329

PATIENT

DRUGS (1)
  1. SYMBICORT [Suspect]
     Active Substance: BUDESONIDE\FORMOTEROL FUMARATE DIHYDRATE
     Dosage: 160 UG UNKNOWN UNKNOWN
     Route: 055

REACTIONS (5)
  - Cough [Unknown]
  - Hypersensitivity [Unknown]
  - Device use issue [Unknown]
  - Device malfunction [Unknown]
  - Insurance issue [Unknown]
